FAERS Safety Report 6204505-2 (Version None)
Quarter: 2009Q2

REPORT INFORMATION
  Report Type: 
  Country: None (occurrence: None)
  Receive Date: 20090527
  Receipt Date: 20090514
  Transmission Date: 20091009
  Serious: Yes (Other)
  Sender: FDA-Public Use
  Company Number: CA-PFIZER INC-2009213154

PATIENT
  Age: 46 Year

DRUGS (7)
  1. CHAMPIX [Suspect]
     Indication: SMOKING CESSATION THERAPY
     Dosage: 1 MG, 2X/DAY
     Route: 048
     Dates: start: 20090320, end: 20090509
  2. FOLIC ACID [Concomitant]
     Dosage: 5 MG, 1X/DAY
     Route: 048
     Dates: start: 20080725
  3. OMEPRAZOLE [Concomitant]
     Dosage: 20 MG, 1X/DAY
     Route: 048
     Dates: start: 20081028
  4. CELEBREX [Concomitant]
     Indication: ARTHRITIS
     Dosage: 200 MG, 1X/DAY
     Route: 048
     Dates: start: 20080410
  5. CITALOPRAM [Concomitant]
     Dosage: 20 MG, 1X/DAY
     Route: 048
     Dates: start: 20080410
  6. HUMIRA [Concomitant]
     Dosage: 40 MG, EVERY 2 WEEKS
     Route: 058
     Dates: start: 20080820
  7. DIGOXIN [Concomitant]
     Dosage: 0.25 MG, 1X/DAY
     Route: 048
     Dates: start: 20080208

REACTIONS (13)
  - ABNORMAL BEHAVIOUR [None]
  - AGGRESSION [None]
  - AGITATION [None]
  - ANXIETY [None]
  - APPETITE DISORDER [None]
  - FATIGUE [None]
  - FEAR [None]
  - IMPAIRED WORK ABILITY [None]
  - MENTAL STATUS CHANGES [None]
  - PARANOIA [None]
  - PHOTOPHOBIA [None]
  - SOMNOLENCE [None]
  - STRESS [None]
